FAERS Safety Report 9264344 (Version 3)
Quarter: 2014Q2

REPORT INFORMATION
  Report Type: Spontaneous
  Country: US (occurrence: US)
  Receive Date: 20130430
  Receipt Date: 20140519
  Transmission Date: 20141212
  Serious: No
  Sender: FDA-Public Use
  Company Number: US-009507513-1304USA017095

PATIENT
  Sex: Male
  Weight: 76.19 kg

DRUGS (3)
  1. PROPECIA [Suspect]
     Indication: ALOPECIA
     Dosage: 1 MG, QD
     Route: 048
     Dates: start: 20090622, end: 200909
  2. ROGAINE [Concomitant]
     Dosage: UNK
  3. NIZORAL [Concomitant]
     Dosage: UNK

REACTIONS (3)
  - Attention deficit/hyperactivity disorder [Unknown]
  - Erectile dysfunction [Not Recovered/Not Resolved]
  - Sexual dysfunction [Not Recovered/Not Resolved]
